FAERS Safety Report 11806818 (Version 2)
Quarter: 2016Q1

REPORT INFORMATION
  Report Type: Report from Study
  Country: US (occurrence: US)
  Receive Date: 20151207
  Receipt Date: 20160125
  Transmission Date: 20160525
  Serious: No
  Sender: FDA-Public Use
  Company Number: US-AMGEN-USASP2015120295

PATIENT
  Age: 65 Year
  Sex: Female
  Weight: 117.1 kg

DRUGS (8)
  1. ASPIRIN                            /00002701/ [Concomitant]
     Active Substance: ASPIRIN
     Dosage: 81 MG, QD
     Route: 048
     Dates: start: 20130207
  2. VALSARTAN HYDROCHLOROTHIAZIDE KRKA [Concomitant]
     Dosage: 320-25 MG, QD
     Route: 048
     Dates: start: 20140917
  3. ALPHAGAN P [Concomitant]
     Active Substance: BRIMONIDINE TARTRATE
     Dosage: 0.1 % 1 DROP IN BITH EYES, BID
     Route: 047
     Dates: start: 20130207
  4. METOPROLOL SUCCINATE. [Concomitant]
     Active Substance: METOPROLOL SUCCINATE
     Dosage: 25 MG, QD
     Route: 048
     Dates: start: 20140325
  5. ZETIA [Concomitant]
     Active Substance: EZETIMIBE
     Dosage: 10 MG, QD
     Route: 048
     Dates: start: 20120808
  6. REPATHA [Suspect]
     Active Substance: EVOLOCUMAB
     Indication: DYSLIPIDAEMIA
     Dosage: 140 MG/ML, Q2WK
     Route: 065
     Dates: start: 20150924
  7. CHOLESTYRAMINE. [Concomitant]
     Active Substance: CHOLESTYRAMINE
     Dosage: 4 G, BID
     Route: 048
     Dates: start: 20140128
  8. XALATAN [Concomitant]
     Active Substance: LATANOPROST
     Dosage: 0.005 % ONE DROP BOTH EYES AT BEDTIME, QD
     Route: 047
     Dates: start: 20130207

REACTIONS (3)
  - Injection site extravasation [Unknown]
  - Underdose [Recovered/Resolved]
  - Wrong technique in product usage process [Unknown]

NARRATIVE: CASE EVENT DATE: 20151111
